FAERS Safety Report 8212412-9 (Version None)
Quarter: 2012Q1

REPORT INFORMATION
  Report Type: 
  Country: None (occurrence: None)
  Receive Date: 20120228
  Receipt Date: 20110427
  Transmission Date: 20120608
  Serious: Yes (Hospitalization, Other)
  Sender: FDA-Public Use
  Company Number: US201102005022

PATIENT
  Age: 22 Year
  Sex: Male
  Weight: 69.8 kg

DRUGS (5)
  1. OLANZAPINE [Suspect]
     Indication: SCHIZOPHRENIA
     Dosage: 210 MG, MONTHLY (1/M), INTRAMUSCULAR, 405 MG, MONTHLY (1/M), INTRAMUSCULAR
     Route: 030
     Dates: start: 20101216
  2. OLANZAPINE [Suspect]
     Indication: SCHIZOPHRENIA
     Dosage: 210 MG, MONTHLY (1/M), INTRAMUSCULAR, 405 MG, MONTHLY (1/M), INTRAMUSCULAR
     Route: 030
     Dates: start: 20110113
  3. OLANZAPINE [Suspect]
     Indication: SCHIZOPHRENIA
     Dosage: 210 MG, MONTHLY (1/M), INTRAMUSCULAR, 405 MG, MONTHLY (1/M), INTRAMUSCULAR
     Route: 030
     Dates: start: 20110214
  4. OLANZAPINE [Suspect]
     Indication: SCHIZOPHRENIA
     Dosage: 210 MG, MONTHLY (1/M), INTRAMUSCULAR, 405 MG, MONTHLY (1/M), INTRAMUSCULAR
     Route: 030
     Dates: start: 20101118
  5. TOPAMAX [Concomitant]

REACTIONS (5)
  - IRRITABILITY [None]
  - SOMNOLENCE [None]
  - DIZZINESS [None]
  - ANXIETY [None]
  - MUSCLE TWITCHING [None]
